FAERS Safety Report 23950022 (Version 1)
Quarter: 2024Q2

REPORT INFORMATION
  Report Type: Spontaneous
  Country: CN (occurrence: CN)
  Receive Date: 20240607
  Receipt Date: 20240607
  Transmission Date: 20240716
  Serious: Yes (Other)
  Sender: FDA-Public Use
  Company Number: CN-009507513-2406CHN000429

PATIENT
  Age: 60 Year
  Sex: Male
  Weight: 56 kg

DRUGS (2)
  1. CILASTATIN SODIUM\IMIPENEM [Suspect]
     Active Substance: CILASTATIN SODIUM\IMIPENEM
     Indication: Anti-infective therapy
     Dosage: 1 GRAM, Q8H
     Dates: start: 20240521, end: 20240521
  2. SODIUM CHLORIDE [Concomitant]
     Active Substance: SODIUM CHLORIDE
     Indication: Medication dilution
     Dosage: 100 MILLILITER, Q8H
     Dates: start: 20240521, end: 20240521

REACTIONS (2)
  - Delirium [Recovering/Resolving]
  - Computerised tomogram head abnormal [Unknown]

NARRATIVE: CASE EVENT DATE: 20240521
